FAERS Safety Report 5039236-8 (Version None)
Quarter: 2006Q2

REPORT INFORMATION
  Report Type: 
  Country: None (occurrence: None)
  Receive Date: 20060623
  Receipt Date: 20060531
  Transmission Date: 20061013
  Serious: Yes (Hospitalization)
  Sender: FDA-Public Use
  Company Number: US200601000799

PATIENT
  Age: 71 Year
  Sex: Female
  Weight: 72.6 kg

DRUGS (10)
  1. FORTEO [Suspect]
     Indication: OSTEOPOROSIS
     Dosage: OTHER
     Route: 050
     Dates: start: 20050913
  2. FORTEO [Suspect]
  3. FORTEO PEN, 250MCG/ML (3ML) (FORTEO PEN 250MCG/ML (3ML)) PEN, DISPOSAB [Concomitant]
  4. FORTEO [Concomitant]
  5. FORTEO [Concomitant]
  6. SYNTHROID [Concomitant]
  7. VITAMINS NOS (VITAMINS NOS) [Concomitant]
  8. CALCIUM (CALCIUM) [Concomitant]
  9. MAXZIDE [Concomitant]
  10. SUDAFED 12 HOUR [Concomitant]

REACTIONS (7)
  - CHOLECYSTITIS ACUTE [None]
  - CHOLELITHIASIS [None]
  - FLUID RETENTION [None]
  - GALLBLADDER DISORDER [None]
  - INCREASED APPETITE [None]
  - MALAISE [None]
  - WEIGHT INCREASED [None]
